FAERS Safety Report 7394484-7 (Version None)
Quarter: 2011Q2

REPORT INFORMATION
  Report Type: 
  Country: None (occurrence: None)
  Receive Date: 20110405
  Receipt Date: 20110323
  Transmission Date: 20111010
  Serious: Yes (Other)
  Sender: FDA-Public Use
  Company Number: PHHY2011US25572

PATIENT
  Sex: Male

DRUGS (12)
  1. ENABLEX [Concomitant]
     Dosage: 15 MG, UNK
  2. OXYCODONE [Concomitant]
  3. DIOVAN [Suspect]
     Dosage: 160 MG, QD
  4. PLAVIX [Concomitant]
     Dosage: 75 MG, UNK
  5. LOVAZA [Concomitant]
     Dosage: THREE TIMES A DAY
  6. MULTI-VITAMIN [Concomitant]
  7. PRAMIPEXOLE DIHYDROCHLORIDE [Concomitant]
     Dosage: 25 MG, UNK
  8. COLACE [Concomitant]
  9. ANTARA (MICRONIZED) [Concomitant]
  10. ASPIRIN [Concomitant]
     Dosage: 325 MG, UNK
  11. METOPROLOL TARTRATE [Concomitant]
     Dosage: 12.5 MG, BID
  12. NASONEX [Concomitant]
     Dosage: 2 PUFFS TWICE DAILY

REACTIONS (1)
  - MYOCARDIAL INFARCTION [None]
